FAERS Safety Report 4846658-4 (Version None)
Quarter: 2005Q4

REPORT INFORMATION
  Report Type: 
  Country: None (occurrence: None)
  Receive Date: 20051201
  Receipt Date: 20051122
  Transmission Date: 20060501
  Serious: Yes (Hospitalization)
  Sender: FDA-Public Use
  Company Number: 2005-0008736

PATIENT
  Age: 70 Year
  Sex: Male

DRUGS (1)
  1. VIREAD [Suspect]
     Indication: HIV INFECTION
     Dosage: ORAL
     Route: 048
     Dates: start: 20050421, end: 20050902

REACTIONS (8)
  - ANOREXIA [None]
  - CD4 LYMPHOCYTES DECREASED [None]
  - DYSURIA [None]
  - FACE OEDEMA [None]
  - NEPHROPATHY [None]
  - POLLAKIURIA [None]
  - RENAL FAILURE ACUTE [None]
  - WEIGHT DECREASED [None]
